FAERS Safety Report 4796705-3 (Version None)
Quarter: 2005Q3

REPORT INFORMATION
  Report Type: 
  Country: None (occurrence: None)
  Receive Date: 20050916
  Receipt Date: 20050104
  Transmission Date: 20060218
  Serious: Yes (Hospitalization)
  Sender: FDA-Public Use
  Company Number: US-JNJFOC-20041102982

PATIENT
  Age: 37 Year
  Sex: Female
  Weight: 72.5755 kg

DRUGS (2)
  1. TOPAMAX [Suspect]
     Indication: CONVULSION
     Dosage: 100 MG, IN 1 DAY, ORAL
     Route: 048
     Dates: start: 20040301
  2. TOPAMAX [Suspect]
     Indication: MIGRAINE
     Dosage: 100 MG, IN 1 DAY, ORAL
     Route: 048
     Dates: start: 20040301

REACTIONS (1)
  - PANCREATITIS CHRONIC [None]
